FAERS Safety Report 8607902-0 (Version None)
Quarter: 2012Q3

REPORT INFORMATION
  Report Type: 
  Country: None (occurrence: None)
  Receive Date: 20120821
  Receipt Date: 20110816
  Transmission Date: 20120928
  Serious: No
  Sender: FDA-Public Use
  Company Number: US-MYLANLABS-2011S1017389

PATIENT
  Sex: Female

DRUGS (1)
  1. NISOLDIPINE [Suspect]

REACTIONS (2)
  - URTICARIA [None]
  - BLOOD PRESSURE INCREASED [None]
